FAERS Safety Report 4276027-X (Version None)
Quarter: 2004Q1

REPORT INFORMATION
  Report Type: 
  Country: None (occurrence: None)
  Receive Date: 20040121
  Receipt Date: 20030624
  Transmission Date: 20041129
  Serious: No
  Sender: FDA-Public Use
  Company Number: US-GLAXOSMITHKLINE-A0413748A

PATIENT
  Age: 60 Year
  Sex: Male

DRUGS (6)
  1. VALTREX [Suspect]
     Indication: HERPES SIMPLEX
     Dosage: 1G TWICE PER DAY
     Route: 048
     Dates: start: 20030624
  2. TYLENOL [Concomitant]
  3. DALMANE [Concomitant]
  4. LOMOTIL [Concomitant]
  5. NASACORT AQ [Concomitant]
     Route: 045
  6. APAP TAB [Concomitant]
     Dosage: 500MG THREE TIMES PER DAY
     Route: 061

REACTIONS (4)
  - BLOOD GLUCOSE DECREASED [None]
  - DIZZINESS [None]
  - FATIGUE [None]
  - HYPERHIDROSIS [None]
